FAERS Safety Report 9472020 (Version 1)
Quarter: 2013Q3

REPORT INFORMATION
  Report Type: Spontaneous
  Country: US (occurrence: US)
  Receive Date: 20130823
  Receipt Date: 20130823
  Transmission Date: 20140515
  Serious: Yes (Hospitalization, Other)
  Sender: FDA-Public Use
  Company Number: US-BIOGENIDEC-2013BI075879

PATIENT
  Sex: Female

DRUGS (11)
  1. TECFIDERA [Suspect]
     Indication: MULTIPLE SCLEROSIS
     Route: 048
     Dates: start: 20130630
  2. TECFIDERA [Suspect]
     Indication: MULTIPLE SCLEROSIS
     Route: 048
  3. VICODIN [Concomitant]
  4. GABAPENTIN [Concomitant]
  5. PAROXETINE HCL [Concomitant]
  6. BACLOFEN [Concomitant]
  7. TEMAZEPAM [Concomitant]
  8. CYANOCOBALAMIN [Concomitant]
  9. CRYSELLE [Concomitant]
  10. EQ OMEPRAZOLE DR [Concomitant]
  11. COMPLETE MULTIVITAMIN [Concomitant]

REACTIONS (5)
  - Intervertebral disc protrusion [Not Recovered/Not Resolved]
  - Vertigo [Not Recovered/Not Resolved]
  - Flushing [Recovered/Resolved]
  - Pruritus [Recovered/Resolved]
  - Multiple sclerosis relapse [Not Recovered/Not Resolved]
